FAERS Safety Report 25533722 (Version 1)
Quarter: 2025Q3

REPORT INFORMATION
  Report Type: Spontaneous
  Country: US (occurrence: US)
  Receive Date: 20250709
  Receipt Date: 20250709
  Transmission Date: 20251020
  Serious: No
  Sender: SANOFI AVENTIS
  Company Number: US-SA-2025SA193009

PATIENT
  Sex: Female
  Weight: 121 kg

DRUGS (2)
  1. DUPIXENT [Suspect]
     Active Substance: DUPILUMAB
     Indication: Asthma
     Dosage: 300 MG: QOW
     Route: 058
  2. RINVOQ [Concomitant]
     Active Substance: UPADACITINIB

REACTIONS (2)
  - Asthma [Unknown]
  - Product dose omission issue [Unknown]
